FAERS Safety Report 11045053 (Version 1)
Quarter: 2015Q2

REPORT INFORMATION
  Report Type: Report from Study
  Country: US (occurrence: US)
  Receive Date: 20150417
  Receipt Date: 20150417
  Transmission Date: 20150821
  Serious: Yes (Other)
  Sender: FDA-Public Use
  Company Number: US-SA-2015SA028172

PATIENT
  Age: 52 Year
  Sex: Female

DRUGS (1)
  1. AUBAGIO [Suspect]
     Active Substance: TERIFLUNOMIDE
     Indication: MULTIPLE SCLEROSIS
     Route: 048
     Dates: start: 20150211, end: 20150326

REACTIONS (10)
  - Fatigue [Unknown]
  - Hot flush [Unknown]
  - Pharyngitis [Unknown]
  - Hypersensitivity [Unknown]
  - Diarrhoea [Recovering/Resolving]
  - Dysphonia [Unknown]
  - Condition aggravated [Unknown]
  - Headache [Unknown]
  - Sleep disorder [Unknown]
  - Pain [Unknown]

NARRATIVE: CASE EVENT DATE: 2015
